FAERS Safety Report 13463384 (Version 1)
Quarter: 2017Q2

REPORT INFORMATION
  Report Type: Spontaneous
  Country: AU (occurrence: AU)
  Receive Date: 20170420
  Receipt Date: 20170420
  Transmission Date: 20170830
  Serious: Yes (Other)
  Sender: FDA-Public Use
  Company Number: AU-BAYER-2017-072569

PATIENT
  Sex: Male

DRUGS (6)
  1. FOLIC ACID. [Concomitant]
     Active Substance: FOLIC ACID
     Route: 064
  2. PRAZOSIN. [Concomitant]
     Active Substance: PRAZOSIN
     Route: 064
  3. NIFEDIPINE. [Suspect]
     Active Substance: NIFEDIPINE
     Dosage: UNK
     Route: 064
  4. CALCIUM [Concomitant]
     Active Substance: CALCIUM
     Route: 064
  5. METHYLDOPA. [Concomitant]
     Active Substance: METHYLDOPA
     Route: 064
  6. ACETYLSALICYLIC ACID({=100 MG) [Suspect]
     Active Substance: ASPIRIN
     Dosage: UNK
     Route: 064

REACTIONS (3)
  - Low birth weight baby [None]
  - Foetal exposure during pregnancy [None]
  - Premature baby [None]
